FAERS Safety Report 7487288-8 (Version None)
Quarter: 2011Q2

REPORT INFORMATION
  Report Type: 
  Country: None (occurrence: None)
  Receive Date: 20110518
  Receipt Date: 20110426
  Transmission Date: 20111010
  Serious: Yes (Hospitalization, Other)
  Sender: FDA-Public Use
  Company Number: US-BAYER-2010-004837

PATIENT
  Sex: Female
  Weight: 172.34 kg

DRUGS (5)
  1. LOVENOX [Concomitant]
  2. LORTAB [Concomitant]
     Route: 048
  3. XANAX [Concomitant]
     Dosage: 0.25 MG, UNK
     Route: 048
  4. YAZ [Suspect]
     Indication: ORAL CONTRACEPTION
     Dosage: UNK
     Dates: start: 20071201
  5. ZANTAC [Concomitant]
     Dosage: 150 MG, UNK
     Route: 048

REACTIONS (4)
  - DEEP VEIN THROMBOSIS [None]
  - EMOTIONAL DISTRESS [None]
  - PULMONARY EMBOLISM [None]
  - PAIN [None]
